FAERS Safety Report 8622582-6 (Version None)
Quarter: 2012Q3

REPORT INFORMATION
  Report Type: 
  Country: None (occurrence: None)
  Receive Date: 20120809
  Receipt Date: 20120725
  Transmission Date: 20120928
  Serious: Yes (Death, Other)
  Sender: FDA-Public Use
  Company Number: 2012MA009129

PATIENT
  Age: 55 Year
  Sex: Female

DRUGS (4)
  1. ACETAMINOPHEN AND HYDROCODONE BITARTRATE [Suspect]
  2. FLUOXETINE [Suspect]
     Dosage: PO
     Route: 048
  3. QUETIAPINE [Suspect]
  4. KADIAN [Suspect]
     Dosage: PO
     Route: 048

REACTIONS (3)
  - TOXICITY TO VARIOUS AGENTS [None]
  - UNRESPONSIVE TO STIMULI [None]
  - COMPLETED SUICIDE [None]
